FAERS Safety Report 17493154 (Version 2)
Quarter: 2020Q2

REPORT INFORMATION
  Report Type: Spontaneous
  Country: IT (occurrence: IT)
  Receive Date: 20200304
  Receipt Date: 20200403
  Transmission Date: 20200713
  Serious: Yes (Hospitalization, Disabling, Other)
  Sender: FDA-Public Use
  Company Number: IT-SA-2020SA051354

PATIENT
  Age: 34 Year
  Sex: Male

DRUGS (2)
  1. SOLU-MEDROL [Concomitant]
     Active Substance: METHYLPREDNISOLONE SODIUM SUCCINATE
     Indication: PREMEDICATION
     Dosage: 500 MG
  2. LEMTRADA [Suspect]
     Active Substance: ALEMTUZUMAB
     Dosage: UNK
     Route: 041
     Dates: start: 20200219, end: 20200221

REACTIONS (9)
  - Pyrexia [Recovered/Resolved]
  - Respiratory failure [Recovering/Resolving]
  - Muscular weakness [Recovering/Resolving]
  - Severe acute respiratory syndrome [Recovering/Resolving]
  - Cytokine release syndrome [Recovering/Resolving]
  - Multiple sclerosis relapse [Recovering/Resolving]
  - Cough [Recovering/Resolving]
  - Fatigue [Recovering/Resolving]
  - Pneumonia [Recovering/Resolving]

NARRATIVE: CASE EVENT DATE: 202002
